FAERS Safety Report 8195601 (Version 2)
Quarter: 2013Q1

REPORT INFORMATION
  Report Type: Report from Study
  Country: US (occurrence: US)
  Receive Date: 20111024
  Receipt Date: 20130121
  Transmission Date: 20140127
  Serious: Yes (Death)
  Sender: FDA-Public Use
  Company Number: US-ABBOTT-11P-163-0867252-00

PATIENT
  Age: 61 Year
  Sex: Male
  Weight: 102.15 kg

DRUGS (4)
  1. HUMIRA 40 MG/0.8 ML PEN [Suspect]
     Indication: RHEUMATOID ARTHRITIS
     Route: 058
     Dates: start: 2008, end: 201103
  2. UNKNOWN MEDICATION [Concomitant]
     Indication: HYPERTENSION
  3. ASPIRIN [Concomitant]
     Indication: CARDIOVASCULAR EVENT PROPHYLAXIS
  4. UNKNOWN MEDICATION [Concomitant]
     Indication: HEART RATE

REACTIONS (2)
  - Myocardial infarction [Fatal]
  - Coronary artery disease [Fatal]
